FAERS Safety Report 20068814 (Version 1)
Quarter: 2021Q4

REPORT INFORMATION
  Report Type: Spontaneous
  Country: JP (occurrence: JP)
  Receive Date: 20211115
  Receipt Date: 20211115
  Transmission Date: 20220303
  Serious: Yes (Death, Other)
  Sender: FDA-Public Use
  Company Number: JP-PFIZER INC-202101489601

PATIENT
  Age: 92 Year
  Sex: Male

DRUGS (1)
  1. VORICONAZOLE [Suspect]
     Active Substance: VORICONAZOLE
     Dosage: UNK

REACTIONS (1)
  - Pneumonia [Fatal]
